FAERS Safety Report 8544446 (Version 2)
Quarter: 2012Q4

REPORT INFORMATION
  Report Type: 
  Country: US (occurrence: US)
  Receive Date: 20120503
  Receipt Date: 20120925
  Transmission Date: 20130627
  Serious: Yes (Disabling)
  Sender: FDA-Public Use
  Company Number: US-PFIZER INC-2012102919

PATIENT
  Age: 61 Year
  Sex: Male

DRUGS (2)
  1. AXITINIB [Suspect]
     Indication: ADENOID CYSTIC CARCINOMA
     Dosage: 5 mg, 2x/day
     Route: 048
     Dates: start: 20120329, end: 20120411
  2. AXITINIB [Suspect]
     Dosage: 7 mg, 2x/day
     Route: 048
     Dates: start: 20120412, end: 20120425

REACTIONS (1)
  - Convulsion [Unknown]
